FAERS Safety Report 6112693-1 (Version None)
Quarter: 2009Q1

REPORT INFORMATION
  Report Type: 
  Country: None (occurrence: None)
  Receive Date: 20090312
  Receipt Date: 20090302
  Transmission Date: 20090719
  Serious: Yes (Death, Other)
  Sender: FDA-Public Use
  Company Number: US-PFIZER INC-2009163177

PATIENT
  Age: 90 Year
  Sex: Male
  Weight: 71.214 kg

DRUGS (9)
  1. DIFLUCAN [Suspect]
     Indication: ENDOCARDITIS CANDIDA
     Dosage: 200 MG, 1X/DAY
     Route: 048
     Dates: start: 20090115, end: 20090127
  2. SLEEP AID [Concomitant]
  3. BENZODIAZEPINE DERIVATIVES [Concomitant]
  4. COREG [Concomitant]
  5. FENTANYL [Concomitant]
  6. PLAVIX [Concomitant]
     Route: 048
  7. LASIX [Concomitant]
     Route: 048
  8. COLACE [Concomitant]
     Route: 048
  9. SENOKOT [Concomitant]
     Route: 048

REACTIONS (5)
  - ALANINE AMINOTRANSFERASE INCREASED [None]
  - ASPARTATE AMINOTRANSFERASE INCREASED [None]
  - CONFUSIONAL STATE [None]
  - INFECTION [None]
  - INTERNATIONAL NORMALISED RATIO INCREASED [None]
